FAERS Safety Report 4492236-9 (Version None)
Quarter: 2004Q3

REPORT INFORMATION
  Report Type: 
  Country: None (occurrence: None)
  Receive Date: 20040922
  Receipt Date: 20040809
  Transmission Date: 20050211
  Serious: Yes (Hospitalization)
  Sender: FDA-Public Use
  Company Number: 377242

PATIENT
  Age: 46 Year
  Sex: Female

DRUGS (7)
  1. COPEGUS [Suspect]
     Indication: HEPATITIS C
     Dates: start: 20040408, end: 20040615
  2. PEG-INTRON (PEG-INTERFRON ALFA 2B) [Suspect]
     Indication: HEPATITIS C
     Dates: start: 20040404, end: 20040615
  3. AMBIEN [Concomitant]
  4. KLONOPIN [Concomitant]
  5. PAXIL [Concomitant]
  6. RISPDERAL (RISPERIDONE) [Concomitant]
  7. ZYPREXA [Concomitant]

REACTIONS (3)
  - ANAEMIA [None]
  - DIABETES MELLITUS [None]
  - THROMBOCYTOPENIA [None]
